FAERS Safety Report 20485702 (Version 2)
Quarter: 2022Q3

REPORT INFORMATION
  Report Type: Spontaneous
  Country: US (occurrence: None)
  Receive Date: 20220217
  Receipt Date: 20220830
  Transmission Date: 20221026
  Serious: Yes (Other)
  Sender: FDA-Public Use
  Company Number: 2022A069320

PATIENT
  Age: 54 Year
  Sex: Female
  Weight: 72.6 kg

DRUGS (65)
  1. NEXIUM [Suspect]
     Active Substance: ESOMEPRAZOLE MAGNESIUM
     Indication: Gastrooesophageal reflux disease
     Route: 048
     Dates: start: 2012, end: 2019
  2. NEXIUM [Suspect]
     Active Substance: ESOMEPRAZOLE MAGNESIUM
     Indication: Gastrooesophageal reflux disease
     Route: 048
     Dates: start: 2012, end: 2019
  3. NEXIUM [Suspect]
     Active Substance: ESOMEPRAZOLE MAGNESIUM
     Indication: Gastrooesophageal reflux disease
     Dosage: GENERIC
     Route: 065
     Dates: start: 2019
  4. NEXIUM [Suspect]
     Active Substance: ESOMEPRAZOLE MAGNESIUM
     Indication: Gastrooesophageal reflux disease
     Dosage: GENERIC
     Route: 065
     Dates: start: 2019
  5. OMEPRAZOLE [Suspect]
     Active Substance: OMEPRAZOLE
     Indication: Gastrooesophageal reflux disease
     Dosage: GENERIC
     Route: 065
     Dates: start: 2015
  6. OMEPRAZOLE [Suspect]
     Active Substance: OMEPRAZOLE
     Indication: Gastrooesophageal reflux disease
     Dosage: GENERIC
     Route: 065
     Dates: start: 2015
  7. AMLODIPINE BESYLATE [Concomitant]
     Active Substance: AMLODIPINE BESYLATE
  8. LISINOPRIL [Concomitant]
     Active Substance: LISINOPRIL
  9. CYCLOBENZAPRINE [Concomitant]
     Active Substance: CYCLOBENZAPRINE
  10. SPIRIVA [Concomitant]
     Active Substance: TIOTROPIUM BROMIDE MONOHYDRATE
  11. ESCITALOPRAM [Concomitant]
     Active Substance: ESCITALOPRAM OXALATE
  12. ACETAMINOPHEN\HYDROCODONE BITARTRATE [Concomitant]
     Active Substance: ACETAMINOPHEN\HYDROCODONE BITARTRATE
  13. NICOTINE [Concomitant]
     Active Substance: NICOTINE
  14. HYDRALAZINE [Concomitant]
     Active Substance: HYDRALAZINE HYDROCHLORIDE
  15. ONDANSETRON [Concomitant]
     Active Substance: ONDANSETRON
  16. CEPHALEXIN [Concomitant]
     Active Substance: CEPHALEXIN
  17. FLUCONAZOLE [Concomitant]
     Active Substance: FLUCONAZOLE
  18. CIPROFLOXACIN [Concomitant]
     Active Substance: CIPROFLOXACIN
  19. PRAVASTATIN [Concomitant]
     Active Substance: PRAVASTATIN
  20. NIFEDIPINE [Concomitant]
     Active Substance: NIFEDIPINE
  21. ALBUTEROL [Concomitant]
     Active Substance: ALBUTEROL
  22. AZITHROMYCIN [Concomitant]
     Active Substance: AZITHROMYCIN
  23. TORSEMIDE [Concomitant]
     Active Substance: TORSEMIDE
  24. DEXAMETHASONE [Concomitant]
     Active Substance: DEXAMETHASONE
  25. DIAZEPAM [Concomitant]
     Active Substance: DIAZEPAM
  26. MUPIROCIN [Concomitant]
     Active Substance: MUPIROCIN
  27. DOXYCYCLINE HYCLATE [Concomitant]
     Active Substance: DOXYCYCLINE HYCLATE
  28. VALACYCLOVIR [Concomitant]
     Active Substance: VALACYCLOVIR HYDROCHLORIDE
  29. NITROFURANTOIN [Concomitant]
     Active Substance: NITROFURANTOIN
  30. METRONIDAZOLE [Concomitant]
     Active Substance: METRONIDAZOLE
  31. BENZONATATE [Concomitant]
     Active Substance: BENZONATATE
  32. SULFAMETH/ TRIMETHOPRIM [Concomitant]
  33. HIBICLENS [Concomitant]
     Active Substance: CHLORHEXIDINE GLUCONATE
  34. CLINDAMYCIN [Concomitant]
     Active Substance: CLINDAMYCIN
  35. LIVALO [Concomitant]
     Active Substance: PITAVASTATIN CALCIUM
  36. PREDNISONE [Concomitant]
     Active Substance: PREDNISONE
  37. MOVOFINE [Concomitant]
  38. VICTOZA [Concomitant]
     Active Substance: LIRAGLUTIDE
  39. KETOROLAC [Concomitant]
     Active Substance: KETOROLAC TROMETHAMINE
  40. POLYMYXIN B/TRIMETHOPRIM [Concomitant]
  41. DIOVAN [Concomitant]
     Active Substance: VALSARTAN
  42. CLONIDINE [Concomitant]
     Active Substance: CLONIDINE
  43. NORETHINDFONE [Concomitant]
  44. WELCHOL [Concomitant]
     Active Substance: COLESEVELAM HYDROCHLORIDE
  45. ADVAIR DISKUS [Concomitant]
     Active Substance: FLUTICASONE PROPIONATE\SALMETEROL XINAFOATE
  46. TUSSIONEX PENNKINETIC [Concomitant]
     Active Substance: CHLORPHENIRAMINE\HYDROCODONE
  47. NYSTATIN [Concomitant]
     Active Substance: NYSTATIN
  48. HYDROCHLOROTHIAZIDE\LISINOPRIL [Concomitant]
     Active Substance: HYDROCHLOROTHIAZIDE\LISINOPRIL
  49. PENICILLIN [Concomitant]
     Active Substance: PENICILLIN
  50. SEVELAMER CARBONATE [Concomitant]
     Active Substance: SEVELAMER CARBONATE
  51. BYDUREON [Concomitant]
     Active Substance: EXENATIDE
  52. FERROUS SULFATE [Concomitant]
     Active Substance: FERROUS SULFATE
  53. LANTUS [Concomitant]
     Active Substance: INSULIN GLARGINE
  54. SYNTHROID [Concomitant]
     Active Substance: LEVOTHYROXINE SODIUM
  55. UNSPECIFIED INGREDIENT [Concomitant]
     Active Substance: UNSPECIFIED INGREDIENT
  56. VITAMIN D [Concomitant]
     Active Substance: VITAMIN D NOS
  57. CODEINE [Concomitant]
     Active Substance: CODEINE
  58. HYDROCHLOROTHIAZIDE [Concomitant]
     Active Substance: HYDROCHLOROTHIAZIDE
  59. CHLORTHALIDONE [Concomitant]
     Active Substance: CHLORTHALIDONE
  60. TRIAMCINOLONE [Concomitant]
     Active Substance: TRIAMCINOLONE
  61. FOLIC ACID [Concomitant]
     Active Substance: FOLIC ACID
  62. POTASSIUM CHLORIDE [Concomitant]
     Active Substance: POTASSIUM CHLORIDE
  63. RIFAMPIN [Concomitant]
     Active Substance: RIFAMPIN
  64. RANITDINE [Concomitant]
  65. CIMETIDINE [Concomitant]
     Active Substance: CIMETIDINE

REACTIONS (5)
  - End stage renal disease [Not Recovered/Not Resolved]
  - Chronic kidney disease [Not Recovered/Not Resolved]
  - Acute kidney injury [Not Recovered/Not Resolved]
  - Renal failure [Unknown]
  - Gastrooesophageal reflux disease [Not Recovered/Not Resolved]

NARRATIVE: CASE EVENT DATE: 20150101
